FAERS Safety Report 20003885 (Version 1)
Quarter: 2021Q4

REPORT INFORMATION
  Report Type: Spontaneous
  Country: DE (occurrence: DE)
  Receive Date: 20211027
  Receipt Date: 20211027
  Transmission Date: 20220303
  Serious: Yes (Hospitalization, Other)
  Sender: FDA-Public Use
  Company Number: DE-PFIZER INC-2021848868

PATIENT
  Age: 63 Year

DRUGS (3)
  1. RAMIPRIL [Suspect]
     Active Substance: RAMIPRIL
     Indication: Heart rate increased
     Dosage: UNK
     Dates: start: 2021
  2. RAMIPRIL [Suspect]
     Active Substance: RAMIPRIL
     Indication: Blood pressure increased
  3. COMIRNATY [Suspect]
     Active Substance: TOZINAMERAN
     Indication: COVID-19 immunisation
     Dosage: UNK (DOSE 2, SINGLE)
     Dates: start: 20210527, end: 20210527

REACTIONS (3)
  - Blood pressure increased [Not Recovered/Not Resolved]
  - Heart rate increased [Not Recovered/Not Resolved]
  - Dizziness [Not Recovered/Not Resolved]

NARRATIVE: CASE EVENT DATE: 20210101
